FAERS Safety Report 9494003 (Version 1)
Quarter: 2013Q3

REPORT INFORMATION
  Report Type: Spontaneous
  Country: SE (occurrence: SE)
  Receive Date: 20130903
  Receipt Date: 20130903
  Transmission Date: 20140515
  Serious: Yes (Other)
  Sender: FDA-Public Use
  Company Number: SE-ROCHE-1269398

PATIENT
  Age: 73 Year
  Sex: Male

DRUGS (1)
  1. LUCENTIS [Suspect]
     Indication: AGE-RELATED MACULAR DEGENERATION
     Dosage: 10 MG/ ML,
     Route: 050
     Dates: start: 201211

REACTIONS (4)
  - Fall [Unknown]
  - Muscular weakness [Recovered/Resolved]
  - Transient ischaemic attack [Recovered/Resolved]
  - Headache [Recovered/Resolved]
